FAERS Safety Report 7539601-0 (Version None)
Quarter: 2011Q2

REPORT INFORMATION
  Report Type: 
  Country: None (occurrence: None)
  Receive Date: 20110609
  Receipt Date: 20110609
  Transmission Date: 20111010
  Serious: Yes (Hospitalization)
  Sender: FDA-Public Use
  Company Number: None

PATIENT
  Sex: Male
  Weight: 122.5 kg

DRUGS (4)
  1. BEVACIZUMAB (RHUMAB VEGF) [Suspect]
     Dosage: 612 MG
     Dates: end: 20110525
  2. OXALIPLATIN [Suspect]
     Dosage: 197 MG
     Dates: end: 20110525
  3. FLUOROURACIL [Suspect]
     Dosage: 5201 MG
     Dates: end: 20110525
  4. LEUCOVORIN CALCIUM [Suspect]
     Dosage: 928 MG
     Dates: end: 20110525

REACTIONS (2)
  - MYOCARDIAL INFARCTION [None]
  - ACUTE CORONARY SYNDROME [None]
